FAERS Safety Report 16128096 (Version 1)
Quarter: 2019Q1

REPORT INFORMATION
  Report Type: Report from Study
  Country: FR (occurrence: FR)
  Receive Date: 20190328
  Receipt Date: 20190328
  Transmission Date: 20190418
  Serious: Yes (Other)
  Sender: FDA-Public Use
  Company Number: FR-ROCHE-2266229

PATIENT
  Age: 67 Year
  Sex: Male
  Weight: 82.6 kg

DRUGS (4)
  1. ADOPORT [Suspect]
     Active Substance: TACROLIMUS
     Indication: RENAL TRANSPLANT
     Route: 048
     Dates: start: 20181221
  2. MYFORTIC [Suspect]
     Active Substance: MYCOPHENOLATE SODIUM
     Indication: TRANSPLANT
     Route: 065
     Dates: start: 20181221
  3. VALGANCICLOVIR. [Suspect]
     Active Substance: VALGANCICLOVIR
     Indication: CYTOMEGALOVIRUS INFECTION
     Route: 065
     Dates: start: 20181221
  4. ADOPORT [Suspect]
     Active Substance: TACROLIMUS
     Route: 048
     Dates: start: 20181221

REACTIONS (2)
  - Leukopenia [Recovered/Resolved]
  - Acidosis [Not Recovered/Not Resolved]

NARRATIVE: CASE EVENT DATE: 20181225
